FAERS Safety Report 25455798 (Version 3)
Quarter: 2025Q3

REPORT INFORMATION
  Report Type: Spontaneous
  Country: EU (occurrence: EU)
  Receive Date: 20250619
  Receipt Date: 20250721
  Transmission Date: 20251020
  Serious: Yes (Other)
  Sender: REGENERON
  Company Number: EU-BAYER-2025A079492

PATIENT
  Sex: Male

DRUGS (3)
  1. EYLEA [Suspect]
     Active Substance: AFLIBERCEPT
     Indication: Diabetic retinal oedema
     Route: 031
     Dates: start: 202402, end: 202402
  2. EYLEA [Suspect]
     Active Substance: AFLIBERCEPT
     Dates: start: 20240412
  3. EYLEA [Suspect]
     Active Substance: AFLIBERCEPT
     Route: 031
     Dates: start: 20250606

REACTIONS (1)
  - Intra-ocular injection complication [Not Recovered/Not Resolved]

NARRATIVE: CASE EVENT DATE: 20250610
